FAERS Safety Report 11791044 (Version 1)
Quarter: 2015Q4

REPORT INFORMATION
  Report Type: Spontaneous
  Country: US (occurrence: US)
  Receive Date: 20151201
  Receipt Date: 20151201
  Transmission Date: 20160305
  Serious: No
  Sender: FDA-Public Use
  Company Number: US-SA-2015SA127364

PATIENT
  Age: 75 Year
  Sex: Female

DRUGS (5)
  1. WARFARIN [Concomitant]
     Active Substance: WARFARIN
  2. HUMALOG [Concomitant]
     Active Substance: INSULIN LISPRO
  3. RENVELA [Suspect]
     Active Substance: SEVELAMER CARBONATE
     Indication: HAEMODIALYSIS
     Route: 065
     Dates: start: 201508
  4. LEVEMIR [Concomitant]
     Active Substance: INSULIN DETEMIR
  5. TACROLIMUS. [Concomitant]
     Active Substance: TACROLIMUS

REACTIONS (2)
  - Heart rate increased [Unknown]
  - Headache [Unknown]

NARRATIVE: CASE EVENT DATE: 20150819
